FAERS Safety Report 8060154-5 (Version None)
Quarter: 2012Q1

REPORT INFORMATION
  Report Type: 
  Country: None (occurrence: None)
  Receive Date: 20120120
  Receipt Date: 20120118
  Transmission Date: 20120608
  Serious: Yes (Hospitalization)
  Sender: FDA-Public Use
  Company Number: AT-ROCHE-785671

PATIENT
  Sex: Female
  Weight: 62 kg

DRUGS (8)
  1. METOCLOPRAMIDE HYDROCHLORIDE [Concomitant]
  2. LEVOTHYROXINE SODIUM [Concomitant]
  3. BENDAMUSTINE [Suspect]
     Indication: NON-HODGKIN'S LYMPHOMA
     Dosage: DOSING FREQUENCY: D1 + D2
     Route: 042
  4. PANTOPRAZOLE SODIUM [Concomitant]
  5. CENIPRES [Concomitant]
  6. MOVIPREP [Concomitant]
  7. ASPIRIN [Concomitant]
  8. MABTHERA [Suspect]
     Indication: NON-HODGKIN'S LYMPHOMA
     Dosage: DOSING FREQUENCY: D0
     Route: 042

REACTIONS (2)
  - SWOLLEN TONGUE [None]
  - VENTRICULAR EXTRASYSTOLES [None]
